FAERS Safety Report 23041684 (Version 1)
Quarter: 2023Q4

REPORT INFORMATION
  Report Type: Spontaneous
  Country: RO (occurrence: RO)
  Receive Date: 20231007
  Receipt Date: 20231007
  Transmission Date: 20240110
  Serious: Yes (Other)
  Sender: FDA-Public Use
  Company Number: RO-SUN PHARMACEUTICAL INDUSTRIES LTD-2023RR-410239

PATIENT
  Age: 67 Year
  Sex: Male

DRUGS (4)
  1. PEMETREXED [Suspect]
     Active Substance: PEMETREXED
     Indication: Lung neoplasm malignant
     Dosage: 500 MILLIGRAM/SQ. METER, EVERY 3 WEEKS
     Route: 065
     Dates: start: 201704
  2. CISPLATIN [Suspect]
     Active Substance: CISPLATIN
     Indication: Lung neoplasm malignant
     Dosage: 75 MILLIGRAM/SQ. METER,EVERY 3 WEEKS, FOR 4 CYCLES
     Route: 065
     Dates: start: 201610
  3. DOCETAXEL [Suspect]
     Active Substance: DOCETAXEL
     Indication: Lung neoplasm malignant
     Dosage: 75 MILLIGRAM/SQ. METER, A TOTAL OF 4 CYCLES
     Route: 065
  4. PACLITAXEL [Suspect]
     Active Substance: PACLITAXEL
     Indication: Lung neoplasm malignant
     Dosage: 175 MILLIGRAM/SQ. METER, DAY 1, EVERY 3 WEEKS, FOR 4 CYCLES
     Route: 065
     Dates: start: 201610

REACTIONS (4)
  - Neutropenia [Unknown]
  - Anaemia [Unknown]
  - Disease progression [Unknown]
  - Thrombocytopenia [Unknown]
